FAERS Safety Report 8936307 (Version 2)
Quarter: 2013Q2

REPORT INFORMATION
  Report Type: Report from Study
  Country: JP (occurrence: JP)
  Receive Date: 20121130
  Receipt Date: 20130603
  Transmission Date: 20140414
  Serious: Yes (Other)
  Sender: FDA-Public Use
  Company Number: JP-009507513-2012SP031416

PATIENT
  Age: 61 Year
  Sex: Male
  Weight: 88 kg

DRUGS (17)
  1. PEGINTRON [Suspect]
     Indication: CHRONIC HEPATITIS C
     Dosage: 1.5MICROGRAM PER KILOGRAM, QW,DAILY DOSE UNKNOWN
     Route: 058
     Dates: start: 20120410, end: 20120605
  2. REBETOL [Suspect]
     Indication: CHRONIC HEPATITIS C
     Dosage: 1000 MG, QD
     Route: 048
     Dates: start: 20120410, end: 20120423
  3. REBETOL [Suspect]
     Dosage: 800 MG, QD
     Route: 048
     Dates: start: 20120424, end: 20120430
  4. REBETOL [Suspect]
     Dosage: 400 MG, QD
     Route: 048
     Dates: start: 20120501, end: 20120514
  5. REBETOL [Suspect]
     Dosage: 200 MG, QD
     Route: 048
     Dates: start: 20120515, end: 20120605
  6. TELAVIC [Suspect]
     Indication: CHRONIC HEPATITIS C
     Dosage: 2250 MG, QD
     Route: 048
     Dates: start: 20120410, end: 20120605
  7. DICLOFENAC SODIUM [Concomitant]
     Indication: BACK PAIN
     Dosage: 50 MG, PRN
     Route: 054
     Dates: start: 20120411, end: 20120412
  8. PYRAZOLONE (PHENYLBUTAZONE) [Concomitant]
     Indication: HEADACHE
     Dosage: 1 G/DAY, PRN
     Route: 048
     Dates: start: 20120515
  9. LORFENAMIN [Concomitant]
     Indication: BACK PAIN
     Dosage: 60 MG/DAY, PRN:FORMULATION:POR
     Route: 048
     Dates: start: 20120605
  10. TAKEPRON [Concomitant]
     Indication: GASTROOESOPHAGEAL REFLUX DISEASE
     Dosage: 15 MG, QD
     Route: 048
     Dates: end: 20120612
  11. GASMOTIN [Concomitant]
     Indication: GASTRITIS
     Dosage: 15 MG, QD
     Route: 048
     Dates: end: 20120612
  12. ALLEGRA [Concomitant]
     Dosage: DRUG FORM: UNKNOWN (UPDATE-19JUN2012)
     Route: 048
     Dates: start: 20120501, end: 20120507
  13. ALLELOCK [Concomitant]
     Dosage: DRUG FORM: UNKNOWN (UPDATE-19JUN2012)
     Route: 048
     Dates: start: 20120508, end: 20120521
  14. RESTAMIN KOWA (DIPHENHYDRAMINE HYDROCHLORIDE) [Concomitant]
     Dosage: DOSE: UNKNOWN (UPDATE-19JUN2012)
     Route: 065
     Dates: start: 20120515
  15. HERBAPOL TALION [Concomitant]
     Dosage: TALION OD (10)(2T), DOSE: UNKNOWN, DRUG FORM: UNKNOWN (UPDATE-19JUN2012)
     Route: 065
     Dates: start: 20120522
  16. NERISONA [Concomitant]
     Dosage: DOSE: UNKNOWN (UPDATE-19JUN2012)
     Route: 065
     Dates: start: 20120522
  17. ATARAX P [Concomitant]
     Dosage: ATARAX P (25)(1C), DRUG FORM: UNKNOWN (UPDATE-19JUN2012)
     Route: 048
     Dates: start: 20120522

REACTIONS (3)
  - Erythema multiforme [Recovering/Resolving]
  - Erythema multiforme [Not Recovered/Not Resolved]
  - Drug eruption [Recovering/Resolving]
